FAERS Safety Report 19484211 (Version 1)
Quarter: 2021Q3

REPORT INFORMATION
  Report Type: Spontaneous
  Country: US (occurrence: US)
  Receive Date: 20210701
  Receipt Date: 20210701
  Transmission Date: 20211014
  Serious: No
  Sender: FDA-Public Use
  Company Number: US-PFIZER INC-2021716966

PATIENT
  Age: 64 Year
  Sex: Female
  Weight: 135.15 kg

DRUGS (1)
  1. DETROL [Suspect]
     Active Substance: TOLTERODINE TARTRATE
     Indication: INCONTINENCE
     Dosage: UNK

REACTIONS (1)
  - Therapeutic product effect incomplete [Unknown]
